FAERS Safety Report 10695150 (Version 1)
Quarter: 2015Q1

REPORT INFORMATION
  Report Type: Spontaneous
  Country: US (occurrence: None)
  Receive Date: 20150106
  Receipt Date: 20150106
  Transmission Date: 20150721
  Serious: Yes (Life-Threatening, Hospitalization)
  Sender: FDA-Public Use
  Company Number: None

PATIENT
  Age: 51 Year
  Sex: Male
  Weight: 83.92 kg

DRUGS (1)
  1. TIVICAY [Suspect]
     Active Substance: DOLUTEGRAVIR SODIUM
     Indication: HIV INFECTION
     Dosage: 1 PILL
     Route: 048
     Dates: start: 20141101, end: 20141130

REACTIONS (5)
  - Blood pressure increased [None]
  - Malaise [None]
  - Myalgia [None]
  - Arthralgia [None]
  - Hepatic enzyme increased [None]

NARRATIVE: CASE EVENT DATE: 20141104
